FAERS Safety Report 16885819 (Version 1)
Quarter: 2019Q4

REPORT INFORMATION
  Report Type: Spontaneous
  Country: IT (occurrence: IT)
  Receive Date: 20191004
  Receipt Date: 20191004
  Transmission Date: 20200122
  Serious: Yes (Hospitalization, Other)
  Sender: FDA-Public Use
  Company Number: IT-TEVA-2019-IT-1105142

PATIENT
  Age: 23 Year
  Sex: Male
  Weight: 60 kg

DRUGS (3)
  1. ANTITHYMOCYTE IMMUNOGLOBULIN [Suspect]
     Active Substance: THYMOCYTE IMMUNE GLOBULIN NOS
     Indication: IMMUNOSUPPRESSANT DRUG THERAPY
     Dosage: UNK
     Route: 065
  2. ENVARSUS XR [Suspect]
     Active Substance: TACROLIMUS
     Indication: IMMUNOSUPPRESSANT DRUG THERAPY
     Dosage: UNK
     Route: 065
  3. MYCOPHENOLIC ACID. [Suspect]
     Active Substance: MYCOPHENOLIC ACID
     Indication: IMMUNOSUPPRESSANT DRUG THERAPY
     Dosage: UNK
     Route: 065

REACTIONS (7)
  - Cytokine release syndrome [Recovered/Resolved]
  - Lactic acidosis [Recovering/Resolving]
  - Renal impairment [Recovered/Resolved]
  - Metabolic disorder [Recovering/Resolving]
  - Acute respiratory distress syndrome [Recovering/Resolving]
  - Cardiac dysfunction [Recovering/Resolving]
  - Haemodynamic instability [Recovering/Resolving]
